FAERS Safety Report 10203769 (Version 2)
Quarter: 2014Q2

REPORT INFORMATION
  Report Type: Spontaneous
  Country: US (occurrence: US)
  Receive Date: 20140529
  Receipt Date: 20140618
  Transmission Date: 20141212
  Serious: Yes (Other)
  Sender: FDA-Public Use
  Company Number: US-TEVA-484461USA

PATIENT
  Sex: Male

DRUGS (1)
  1. PROAIR HFA [Suspect]
     Route: 055

REACTIONS (10)
  - Dyspnoea [Recovered/Resolved]
  - Adverse event [Unknown]
  - Dyspnoea [Unknown]
  - Drug effect decreased [Unknown]
  - Product quality issue [Unknown]
  - Wrong technique in drug usage process [Unknown]
  - Drug ineffective [Unknown]
  - Device deployment issue [Unknown]
  - Incorrect dose administered [Unknown]
  - Device occlusion [Unknown]
